FAERS Safety Report 10338348 (Version 2)
Quarter: 2014Q3

REPORT INFORMATION
  Report Type: Report from Study
  Country: LT (occurrence: None)
  Receive Date: 20140721
  Receipt Date: 20140728
  Transmission Date: 20150326
  Serious: Yes (Hospitalization)
  Sender: FDA-Public Use
  Company Number: 2014-15864

PATIENT
  Age: 40 Year
  Sex: Female

DRUGS (1)
  1. ULIPRISTAL ACETATE [Suspect]
     Active Substance: ULIPRISTAL ACETATE
     Indication: UTERINE LEIOMYOMA
     Route: 048
     Dates: start: 20130125, end: 20140419

REACTIONS (1)
  - Uterine leiomyoma [None]

NARRATIVE: CASE EVENT DATE: 20140702
